FAERS Safety Report 16483764 (Version 1)
Quarter: 2019Q2

REPORT INFORMATION
  Report Type: Spontaneous
  Country: BE (occurrence: BE)
  Receive Date: 20190627
  Receipt Date: 20190627
  Transmission Date: 20190711
  Serious: Yes (Hospitalization)
  Sender: FDA-Public Use
  Company Number: BE-MYLANLABS-2018M1027267

PATIENT
  Age: 50 Year
  Sex: Male

DRUGS (12)
  1. AMIODARONE [Suspect]
     Active Substance: AMIODARONE
     Indication: ATRIAL FIBRILLATION
     Route: 065
  2. THIAMAZOLE [Suspect]
     Active Substance: METHIMAZOLE
     Dosage: DOSE REDUCED ON DAY 8,POST HYPER-THYROIDISM DIAGNOSIS
     Route: 065
  3. POTASSIUM PERCHLORATE [Suspect]
     Active Substance: POTASSIUM PERCHLORATE
     Indication: HYPERTHYROIDISM
     Dosage: 900 MILLIGRAM
     Route: 065
  4. METHYLPREDNISOLONE. [Suspect]
     Active Substance: METHYLPREDNISOLONE
     Dosage: DOSE REDUCED ON DAY 49 POST-HYPERTHYROIDISM DIAGNOSIS (ON THE DAY OF TOTAL THYROIDECTOMY)
     Route: 065
  5. POTASSIUM PERCHLORATE [Suspect]
     Active Substance: POTASSIUM PERCHLORATE
     Dosage: DOSE INCREASED ON DAY 33 POST HYPERTHYROIDISM
     Route: 065
  6. DIGOXIN. [Suspect]
     Active Substance: DIGOXIN
     Indication: ATRIAL FIBRILLATION
     Dosage: 25 MILLIGRAM
     Route: 065
  7. METHYLPREDNISOLONE. [Suspect]
     Active Substance: METHYLPREDNISOLONE
     Indication: HYPERTHYROIDISM
     Dosage: 48 MILLIGRAM
     Route: 065
  8. PROPRANOLOL [Suspect]
     Active Substance: PROPRANOLOL HYDROCHLORIDE
     Indication: ATRIAL FIBRILLATION
     Dosage: 120 MILLIGARM
     Route: 065
  9. THIAMAZOLE [Suspect]
     Active Substance: METHIMAZOLE
     Indication: HYPERTHYROIDISM
     Dosage: DOSE INCREASED ON DAY 33 POST HYPERTHYROIDISM
     Route: 065
  10. PROPRANOLOL [Suspect]
     Active Substance: PROPRANOLOL HYDROCHLORIDE
     Dosage: 240 MILLIGRAM
     Route: 065
  11. METHYLPREDNISOLONE. [Suspect]
     Active Substance: METHYLPREDNISOLONE
     Dosage: DOSE INCREASED ON DAY 8 POST HYPERTHYROIDISM
     Route: 065
  12. METHYLPREDNISOLONE. [Suspect]
     Active Substance: METHYLPREDNISOLONE
     Dosage: DOSE INCREASED ON DAY 33 POST HYPERTHYROIDISM
     Route: 065

REACTIONS (3)
  - Drug ineffective [Recovered/Resolved]
  - Urine iodine increased [Recovered/Resolved]
  - Hyperthyroidism [Recovered/Resolved]
